FAERS Safety Report 10465022 (Version 1)
Quarter: 2014Q3

REPORT INFORMATION
  Report Type: Spontaneous
  Country: JP (occurrence: JP)
  Receive Date: 20140919
  Receipt Date: 20140919
  Transmission Date: 20150326
  Serious: Yes (Other)
  Sender: FDA-Public Use
  Company Number: JP-GLAXOSMITHKLINE-B1035019A

PATIENT
  Sex: Male

DRUGS (3)
  1. PAZOPANIB [Suspect]
     Active Substance: PAZOPANIB
     Indication: ANGIOSARCOMA
     Dosage: 800MG PER DAY
     Route: 048
  2. INTERLEUKIN-2 [Suspect]
     Active Substance: ALDESLEUKIN
     Indication: NEOPLASM SKIN
     Route: 065
  3. DOCETAXEL [Suspect]
     Active Substance: DOCETAXEL
     Indication: NEOPLASM SKIN
     Route: 065

REACTIONS (4)
  - Drug ineffective [Unknown]
  - Thrombocytopenia [Recovered/Resolved]
  - Neutropenia [Unknown]
  - Proteinuria [Unknown]
